FAERS Safety Report 21861406 (Version 2)
Quarter: 2023Q1

REPORT INFORMATION
  Report Type: Report from Study
  Country: BR (occurrence: BR)
  Receive Date: 20230113
  Receipt Date: 20230118
  Transmission Date: 20230418
  Serious: Yes (Death, Hospitalization, Other)
  Sender: FDA-Public Use
  Company Number: BR-BoehringerIngelheim-2022-BI-196706

PATIENT
  Sex: Female
  Weight: 45 kg

DRUGS (3)
  1. OFEV [Suspect]
     Active Substance: NINTEDANIB
     Indication: Idiopathic pulmonary fibrosis
     Dosage: 150 MG ,1 CAPSULES EVERY 12 HOURS.
     Route: 048
     Dates: start: 2020
  2. OFEV [Suspect]
     Active Substance: NINTEDANIB
     Dosage: DOSE CHANGE
  3. OFEV [Suspect]
     Active Substance: NINTEDANIB
     Dosage: 2 CAPSULES
     Dates: end: 202202

REACTIONS (9)
  - Liver disorder [Fatal]
  - Idiopathic pulmonary fibrosis [Fatal]
  - Renal disorder [Fatal]
  - Peripheral swelling [Unknown]
  - Liver disorder [Unknown]
  - Head discomfort [Unknown]
  - Disorganised speech [Unknown]
  - Nausea [Recovered/Resolved]
  - Weight decreased [Recovered/Resolved]
